FAERS Safety Report 6944864-6 (Version None)
Quarter: 2010Q3

REPORT INFORMATION
  Report Type: 
  Country: None (occurrence: None)
  Receive Date: 20100827
  Receipt Date: 20100817
  Transmission Date: 20110219
  Serious: Yes (Hospitalization, Other)
  Sender: FDA-Public Use
  Company Number: US-WYE-H16993610

PATIENT
  Sex: Female
  Weight: 118.04 kg

DRUGS (5)
  1. EFFEXOR [Suspect]
     Indication: DEPRESSION
     Dosage: UNKNOWN
     Dates: start: 20000101
  2. GABAPENTIN [Concomitant]
     Indication: DEPRESSION
     Dosage: 600 MG , UNSPECIFIED FREQUENCY
  3. NORVASC [Concomitant]
     Indication: HYPERTENSION
     Dosage: UNKNOWN
  4. EFFEXOR XR [Suspect]
     Indication: DEPRESSION
     Dosage: UNKNOWN
  5. ZYPREXA [Suspect]
     Indication: DEPRESSION
     Dosage: 10 MG, UNSPECIFIED FREQUENCY

REACTIONS (5)
  - BLOOD TRIGLYCERIDES INCREASED [None]
  - CHEST PAIN [None]
  - DRUG WITHDRAWAL SYNDROME [None]
  - INAPPROPRIATE SCHEDULE OF DRUG ADMINISTRATION [None]
  - INFLUENZA LIKE ILLNESS [None]
